FAERS Safety Report 21031839 (Version 1)
Quarter: 2022Q3

REPORT INFORMATION
  Report Type: Spontaneous
  Country: US (occurrence: US)
  Receive Date: 20220701
  Receipt Date: 20220701
  Transmission Date: 20221027
  Serious: No
  Sender: FDA-Public Use
  Company Number: US-AMGEN-USASP2022108859

PATIENT
  Age: 63 Year
  Sex: Male

DRUGS (6)
  1. RITUXIMAB [Suspect]
     Active Substance: RITUXIMAB
     Indication: Rhabdomyolysis
     Dosage: 1000 MILLIGRAM
     Route: 065
  2. RITUXIMAB [Suspect]
     Active Substance: RITUXIMAB
     Dosage: 1000 MILLIGRAM GIVEN 2 WEEKS LATER
     Route: 065
  3. METFORMIN [Concomitant]
     Active Substance: METFORMIN HYDROCHLORIDE
     Indication: Type 2 diabetes mellitus
  4. METHYLPREDNISOLONE [Concomitant]
     Active Substance: METHYLPREDNISOLONE
     Indication: Rhabdomyolysis
     Dosage: 200 MILLIGRAM, BID FOR 3 DAYS
  5. PREDNISONE [Concomitant]
     Active Substance: PREDNISONE
     Indication: Rhabdomyolysis
     Dosage: 60 MILLIGRAM, DAILY
     Route: 048
  6. IMMUNE GLOBULIN NOS [Concomitant]
     Active Substance: IMMUNE GLOBULIN NOS
     Indication: Rhabdomyolysis
     Dosage: 2 GRAM/KILOGRAMS FOR 5 DAYS
     Route: 042

REACTIONS (2)
  - Drug effective for unapproved indication [Unknown]
  - Off label use [Unknown]
